FAERS Safety Report 12696725 (Version 2)
Quarter: 2016Q3

REPORT INFORMATION
  Report Type: Spontaneous
  Country: US (occurrence: US)
  Receive Date: 20160830
  Receipt Date: 20160906
  Transmission Date: 20161109
  Serious: Yes (Hospitalization)
  Sender: FDA-Public Use
  Company Number: PHEH2016US021473

PATIENT
  Age: 42 Year
  Sex: Male
  Weight: 124.26 kg

DRUGS (6)
  1. ENTRESTO [Suspect]
     Active Substance: SACUBITRIL\VALSARTAN
     Indication: CARDIAC FAILURE CHRONIC
     Dosage: 50 MG (24/26) BID
     Route: 048
     Dates: start: 20160804
  2. ENTRESTO [Suspect]
     Active Substance: SACUBITRIL\VALSARTAN
     Dosage: 100 MG (49/51), BID
     Route: 048
  3. ENTRESTO [Suspect]
     Active Substance: SACUBITRIL\VALSARTAN
     Dosage: 50 MG (24/26) BID
     Route: 048
     Dates: start: 20160822
  4. COREG [Concomitant]
     Active Substance: CARVEDILOL
     Indication: PRODUCT USED FOR UNKNOWN INDICATION
     Dosage: 3.125 MG, BID
     Route: 048
     Dates: start: 20160715
  5. LASIX [Concomitant]
     Active Substance: FUROSEMIDE
     Indication: PRODUCT USED FOR UNKNOWN INDICATION
     Dosage: 40 MG, PRN
     Route: 048
  6. POTASSIUM [Concomitant]
     Active Substance: POTASSIUM
     Indication: PRODUCT USED FOR UNKNOWN INDICATION
     Dosage: 20 MEQ, PRN
     Route: 048
     Dates: start: 20160818

REACTIONS (16)
  - Fatigue [Recovered/Resolved]
  - Joint swelling [Unknown]
  - Palpitations [Recovered/Resolved]
  - Oedema [Unknown]
  - Abdominal distension [Unknown]
  - Weight increased [Unknown]
  - Incorrect dose administered [Unknown]
  - Flushing [Unknown]
  - Dizziness [Unknown]
  - Influenza like illness [Unknown]
  - Asthenia [Unknown]
  - Myalgia [Recovered/Resolved]
  - Dyspnoea [Unknown]
  - Malaise [Recovered/Resolved]
  - Chest pain [Not Recovered/Not Resolved]
  - Heart rate irregular [Unknown]

NARRATIVE: CASE EVENT DATE: 20160818
